FAERS Safety Report 6124421-4 (Version None)
Quarter: 2009Q1

REPORT INFORMATION
  Report Type: 
  Country: None (occurrence: None)
  Receive Date: 20090317
  Receipt Date: 20090303
  Transmission Date: 20090719
  Serious: Yes (Life-Threatening, Hospitalization)
  Sender: FDA-Public Use
  Company Number: 2009SP000298

PATIENT
  Sex: Female
  Weight: 72.7 kg

DRUGS (14)
  1. XOPENEX [Suspect]
     Indication: ASTHMA
     Dosage: 1.25 MG/3ML;Q3H;INHALATION;  1.25 MG/3ML;PRN;INHALATION
     Route: 055
     Dates: end: 20090122
  2. THEOPHYLLINE [Concomitant]
  3. SOLU-MEDROL [Concomitant]
  4. ADVAIR HFA [Concomitant]
  5. IPRATROPIUM BROMIDE [Concomitant]
  6. CARDIZEM [Concomitant]
  7. LIPITOR [Concomitant]
  8. LOPID [Concomitant]
  9. EFFEXOR /01233802/ [Concomitant]
  10. TRAZODONE HCL [Concomitant]
  11. CLONAZEPAM [Concomitant]
  12. BONIVA [Concomitant]
  13. ALBUTEROL [Concomitant]
  14. FORMOTEROL [Concomitant]

REACTIONS (9)
  - ASTHMA [None]
  - BRONCHOSPASM PARADOXICAL [None]
  - CONDITION AGGRAVATED [None]
  - DIABETES MELLITUS [None]
  - HEART RATE INCREASED [None]
  - HYPERTENSION [None]
  - RESPIRATORY FAILURE [None]
  - SYNCOPE [None]
  - TREMOR [None]
